FAERS Safety Report 7237313-4 (Version None)
Quarter: 2011Q1

REPORT INFORMATION
  Report Type: 
  Country: None (occurrence: None)
  Receive Date: 20110121
  Receipt Date: 20110110
  Transmission Date: 20110831
  Serious: Yes (Hospitalization, Other)
  Sender: FDA-Public Use
  Company Number: US-ELI_LILLY_AND_COMPANY-US201012001632

PATIENT
  Sex: Female

DRUGS (30)
  1. ASPIRIN [Concomitant]
     Dosage: 81 MG, UNK
  2. SIMVASTATIN [Concomitant]
  3. LEXAPRO [Concomitant]
  4. OXYCONTIN [Concomitant]
     Dosage: 20 MG, 3/D
  5. SPIRIVA [Concomitant]
  6. GABAPENTIN [Concomitant]
  7. FOLIC ACID [Concomitant]
  8. PROPRANOLOL [Concomitant]
  9. BENICAR [Concomitant]
  10. POTASSIUM [Concomitant]
  11. ADDERALL 10 [Concomitant]
  12. DIAZEPAM [Concomitant]
  13. OXYCONTIN [Concomitant]
     Dosage: 40 MG, 3/D
  14. POLYETHYLENE GLYCOL [Concomitant]
  15. FORTEO [Suspect]
     Indication: OSTEOPOROSIS
     Dosage: 20 UG, DAILY (1/D)
     Dates: start: 20101108
  16. ZOLPIDEM [Concomitant]
  17. FUROSEMIDE [Concomitant]
  18. ACYCLOVIR [Concomitant]
  19. LOTEMAX [Concomitant]
  20. METHOTREXATE [Concomitant]
  21. PREDNISONE [Concomitant]
  22. RELAFEN [Concomitant]
  23. PILOCARPINE [Concomitant]
  24. NITROFURANTOIN [Concomitant]
  25. METAMUCIL-2 [Concomitant]
  26. REMICADE [Concomitant]
     Dosage: UNK, EVERY 8 WEEKS
  27. FORTEO [Suspect]
     Dosage: 20 UG, DAILY (1/D)
     Dates: end: 20110103
  28. LAMOTRIGINE [Concomitant]
  29. OXYCONTIN [Concomitant]
     Dosage: UNK, 2/D
  30. RESTASIS [Concomitant]

REACTIONS (8)
  - PAIN [None]
  - PELVIC FRACTURE [None]
  - DELIRIUM [None]
  - COGNITIVE DISORDER [None]
  - EXPIRED DRUG ADMINISTERED [None]
  - ANXIETY [None]
  - DELUSION [None]
  - TRANSIENT ISCHAEMIC ATTACK [None]
